FAERS Safety Report 7199365-X (Version None)
Quarter: 2010Q4

REPORT INFORMATION
  Report Type: 
  Country: None (occurrence: None)
  Receive Date: 20101223
  Receipt Date: 20101223
  Transmission Date: 20110411
  Serious: Yes (Other)
  Sender: FDA-Public Use
  Company Number: None

PATIENT
  Age: 28 Year
  Sex: Female
  Weight: 42.6381 kg

DRUGS (1)
  1. MIRENA [Suspect]
     Indication: CONTRACEPTION
     Dates: start: 20090911, end: 20101222

REACTIONS (7)
  - BREAST CYST [None]
  - BREAST PAIN [None]
  - BREAST SWELLING [None]
  - FLUID RETENTION [None]
  - HEADACHE [None]
  - IRRITABILITY [None]
  - WEIGHT INCREASED [None]
